FAERS Safety Report 8796736 (Version 1)
Quarter: 2012Q4

REPORT INFORMATION
  Report Type: 
  Country: DE (occurrence: GB)
  Receive Date: 20120917
  Receipt Date: 20120917
  Transmission Date: 20130627
  Serious: Yes (Life-Threatening, Hospitalization, Other)
  Sender: FDA-Public Use
  Company Number: GB-BRISTOL-MYERS SQUIBB COMPANY-16955965

PATIENT
  Age: 49 Year
  Sex: Female
  Weight: 45 kg

DRUGS (8)
  1. METFORMIN HCL [Suspect]
     Indication: TYPE 2 DIABETES MELLITUS
     Route: 048
     Dates: end: 20120820
  2. ADCAL-D3 [Concomitant]
  3. ASPIRIN [Concomitant]
  4. CODEINE [Concomitant]
  5. CYCLIZINE [Concomitant]
  6. OMEPRAZOLE [Concomitant]
  7. PRAVASTATIN SODIUM [Concomitant]
  8. PROCHLORPERAZINE [Concomitant]

REACTIONS (5)
  - Renal failure acute [Recovering/Resolving]
  - Acute respiratory distress syndrome [Recovering/Resolving]
  - Metabolic acidosis [Recovering/Resolving]
  - Lactic acidosis [Recovering/Resolving]
  - Abdominal pain [Recovering/Resolving]
